FAERS Safety Report 17445619 (Version 2)
Quarter: 2020Q3

REPORT INFORMATION
  Report Type: Report from Study
  Country: US (occurrence: US)
  Receive Date: 20200221
  Receipt Date: 20200820
  Transmission Date: 20201102
  Serious: Yes (Other)
  Sender: FDA-Public Use
  Company Number: NVSC2020US044638

PATIENT
  Age: 67 Year
  Sex: Male

DRUGS (1)
  1. ENTRESTO [Suspect]
     Active Substance: SACUBITRIL\VALSARTAN
     Indication: CARDIAC FAILURE
     Dosage: UNK, QD
     Route: 048

REACTIONS (4)
  - Chest discomfort [Recovered/Resolved]
  - Cardiac discomfort [Recovered/Resolved]
  - Coronary artery occlusion [Unknown]
  - Hypotension [Unknown]
